FAERS Safety Report 4445945-1 (Version None)
Quarter: 2004Q3

REPORT INFORMATION
  Report Type: 
  Country: None (occurrence: None)
  Receive Date: 20040903
  Receipt Date: 20040819
  Transmission Date: 20050211
  Serious: Yes (Death, Life-Threatening, Hospitalization)
  Sender: FDA-Public Use
  Company Number: 04P-163-0271397-00

PATIENT
  Age: 71 Year
  Sex: Female

DRUGS (4)
  1. VICODIN [Suspect]
     Indication: RHEUMATOID ARTHRITIS
     Dosage: 1 TABLET, AS REQUIRED, PER ORAL
     Route: 048
     Dates: start: 19910101, end: 20040511
  2. METHOTREXATE [Concomitant]
  3. PREDNISONE [Concomitant]
  4. IBUPROFEN [Concomitant]

REACTIONS (3)
  - DEHYDRATION [None]
  - LUNG INFILTRATION [None]
  - PNEUMONITIS [None]
